FAERS Safety Report 8954070 (Version 1)
Quarter: 2012Q4

REPORT INFORMATION
  Report Type: 
  Country: US (occurrence: US)
  Receive Date: 20121207
  Receipt Date: 20121207
  Transmission Date: 20130627
  Serious: Yes (Hospitalization)
  Sender: FDA-Public Use
  Company Number: US-US-EMD SERONO, INC.-7158692

PATIENT
  Sex: Female

DRUGS (1)
  1. REBIF [Suspect]
     Indication: MULTIPLE SCLEROSIS
     Route: 058
     Dates: start: 20110907, end: 201208

REACTIONS (3)
  - Meningitis [Recovering/Resolving]
  - Multiple sclerosis [Recovering/Resolving]
  - Injection site nodule [Not Recovered/Not Resolved]
